FAERS Safety Report 4606004-8 (Version None)
Quarter: 2005Q1

REPORT INFORMATION
  Report Type: 
  Country: None (occurrence: None)
  Receive Date: 20050311
  Receipt Date: 20030519
  Transmission Date: 20050727
  Serious: Yes (Life-Threatening, Hospitalization, Other)
  Sender: FDA-Public Use
  Company Number: PHFR2003IE02073

PATIENT
  Age: 41 Year
  Sex: Male
  Weight: 89 kg

DRUGS (4)
  1. CLOZARIL [Suspect]
     Indication: SCHIZOPHRENIA
     Dosage: 300 MG/DAY
     Route: 048
     Dates: start: 20030502, end: 20030519
  2. VALPROATE SODIUM [Concomitant]
     Dosage: 1000 MG/DAY
     Route: 048
     Dates: start: 20030507, end: 20030519
  3. CLONAZEPAM [Concomitant]
     Dosage: 1.5 MG/DAY
     Route: 048
     Dates: start: 20030507, end: 20030520
  4. KWELLS [Concomitant]
     Dosage: 4 TAB/DAY
     Route: 048
     Dates: start: 20030517, end: 20030519

REACTIONS (24)
  - AGITATION [None]
  - ASPARTATE AMINOTRANSFERASE INCREASED [None]
  - BLINDNESS [None]
  - BLOOD BILIRUBIN INCREASED [None]
  - BLOOD LACTATE DEHYDROGENASE INCREASED [None]
  - BLOOD POTASSIUM INCREASED [None]
  - BLOOD SODIUM DECREASED [None]
  - BLOOD UREA INCREASED [None]
  - BRAIN HYPOXIA [None]
  - CARDIAC ARREST [None]
  - CARDIOMYOPATHY [None]
  - CONVULSION [None]
  - DEPRESSED LEVEL OF CONSCIOUSNESS [None]
  - DIABETES MELLITUS [None]
  - DISORIENTATION [None]
  - FAECAL INCONTINENCE [None]
  - HEPATIC FAILURE [None]
  - HYPERHIDROSIS [None]
  - HYPERTHERMIA [None]
  - HYPOTENSION [None]
  - MYOCARDITIS [None]
  - PAIN [None]
  - TACHYCARDIA [None]
  - URINARY INCONTINENCE [None]
